FAERS Safety Report 5265944-X (Version None)
Quarter: 2007Q1

REPORT INFORMATION
  Report Type: 
  Country: None (occurrence: None)
  Receive Date: 20070312
  Receipt Date: 20070312
  Transmission Date: 20070707
  Serious: Yes (Hospitalization, Other)
  Sender: FDA-Public Use
  Company Number: None

PATIENT
  Age: 1 Year
  Sex: Female
  Weight: 10.4327 kg

DRUGS (2)
  1. PREDNISOLONE [Suspect]
     Indication: WHEEZING
     Dosage: 3ML BID PO
     Route: 048
     Dates: start: 20070224, end: 20070224
  2. ALBUTEROL SULATE [Suspect]
     Indication: WHEEZING
     Dosage: 2ML TID PO
     Route: 048
     Dates: start: 20070224, end: 20070224

REACTIONS (1)
  - FEBRILE CONVULSION [None]
